FAERS Safety Report 8354697 (Version 6)
Quarter: 2012Q4

REPORT INFORMATION
  Report Type: 
  Country: US (occurrence: US)
  Receive Date: 20120125
  Receipt Date: 20121015
  Transmission Date: 20130627
  Serious: Yes (Disabling, Other)
  Sender: FDA-Public Use
  Company Number: US-JNJFOC-20120109646

PATIENT
  Age: 53 None
  Sex: Female
  Weight: 98.43 kg

DRUGS (23)
  1. LEVAQUIN [Suspect]
     Indication: COUGH
     Dosage: for 10 days
     Route: 048
     Dates: start: 20120107, end: 20120114
  2. LEVAQUIN [Suspect]
     Indication: COUGH
     Dosage: for 10 days
     Route: 048
     Dates: start: 201110, end: 201110
  3. LEVAQUIN [Suspect]
     Indication: COUGH
     Dosage: for 10 days
     Route: 048
     Dates: start: 20111109, end: 20111119
  4. LEVAQUIN [Suspect]
     Indication: COUGH
     Route: 048
     Dates: start: 20120126, end: 20120129
  5. LEVAQUIN [Suspect]
     Indication: ASTHMA
     Route: 048
     Dates: start: 20120126, end: 20120129
  6. LEVAQUIN [Suspect]
     Indication: ASTHMA
     Dosage: for 10 days
     Route: 048
     Dates: start: 20120107, end: 20120114
  7. LEVAQUIN [Suspect]
     Indication: ASTHMA
     Dosage: for 10 days
     Route: 048
     Dates: start: 20111109, end: 20111119
  8. LEVAQUIN [Suspect]
     Indication: ASTHMA
     Dosage: for 10 days
     Route: 048
     Dates: start: 201110, end: 201110
  9. LEVAQUIN [Suspect]
     Indication: BRONCHITIS
     Route: 048
     Dates: start: 20120126, end: 20120129
  10. LEVAQUIN [Suspect]
     Indication: BRONCHITIS
     Dosage: for 10 days
     Route: 048
     Dates: start: 201110, end: 201110
  11. LEVAQUIN [Suspect]
     Indication: BRONCHITIS
     Dosage: for 10 days
     Route: 048
     Dates: start: 20120107, end: 20120114
  12. LEVAQUIN [Suspect]
     Indication: BRONCHITIS
     Dosage: for 10 days
     Route: 048
     Dates: start: 20111109, end: 20111119
  13. CIPRO [Suspect]
     Indication: PRODUCT USED FOR UNKNOWN INDICATION
     Route: 065
     Dates: start: 20091217
  14. MEDROL [Suspect]
     Indication: PRODUCT USED FOR UNKNOWN INDICATION
     Route: 065
     Dates: start: 20100212
  15. MEDROL [Suspect]
     Indication: PRODUCT USED FOR UNKNOWN INDICATION
     Route: 065
     Dates: start: 20100415
  16. MEDROL [Suspect]
     Indication: PRODUCT USED FOR UNKNOWN INDICATION
     Route: 065
     Dates: start: 20100610
  17. MEDROL [Suspect]
     Indication: PRODUCT USED FOR UNKNOWN INDICATION
     Route: 065
     Dates: start: 20100909
  18. BECLOMETHASONE DIPROPIONATE [Suspect]
     Indication: PRODUCT USED FOR UNKNOWN INDICATION
     Route: 055
  19. SINGULAIR [Concomitant]
     Indication: ASTHMA
     Route: 065
  20. SYNTHROID [Concomitant]
     Indication: HYPOTHYROIDISM
     Route: 065
  21. PROPRANOLOL [Concomitant]
     Indication: MIGRAINE
     Route: 065
  22. PRO-AIR [Concomitant]
     Route: 055
  23. VITAMIN B-12 [Concomitant]
     Route: 065

REACTIONS (14)
  - Nerve compression [Not Recovered/Not Resolved]
  - Haemorrhage [Recovered/Resolved with Sequelae]
  - Skin discolouration [Not Recovered/Not Resolved]
  - Joint swelling [Not Recovered/Not Resolved]
  - Oedema peripheral [Not Recovered/Not Resolved]
  - Arthralgia [Not Recovered/Not Resolved]
  - Immune system disorder [Unknown]
  - Joint effusion [Unknown]
  - Tendonitis [Recovering/Resolving]
  - Arthritis [Unknown]
  - Hypoaesthesia [Unknown]
  - Hypoaesthesia [Recovering/Resolving]
  - Paraesthesia [Recovering/Resolving]
  - Muscular weakness [Recovering/Resolving]
